FAERS Safety Report 7582738-0 (Version None)
Quarter: 2011Q2

REPORT INFORMATION
  Report Type: 
  Country: None (occurrence: None)
  Receive Date: 20110623
  Receipt Date: 20110610
  Transmission Date: 20111010
  Serious: Yes (Hospitalization)
  Sender: FDA-Public Use
  Company Number: LEO-2011-00345

PATIENT
  Sex: Female
  Weight: 90 kg

DRUGS (1)
  1. INNOHEP [Suspect]
     Indication: THROMBOSIS PROPHYLAXIS
     Dosage: 4500 IU, SUBCUTANEOUS
     Route: 058

REACTIONS (3)
  - PULMONARY EMBOLISM [None]
  - OFF LABEL USE [None]
  - DRUG EXPOSURE DURING PREGNANCY [None]
